FAERS Safety Report 5120209-1 (Version None)
Quarter: 2006Q4

REPORT INFORMATION
  Report Type: 
  Country: None (occurrence: None)
  Receive Date: 20061002
  Receipt Date: 20061002
  Transmission Date: 20070319
  Serious: Yes (Other)
  Sender: FDA-Public Use
  Company Number: None

PATIENT
  Age: 80 Year
  Sex: Male

DRUGS (8)
  1. REVLIMID [Suspect]
     Indication: MULTIPLE MYELOMA
     Dosage: 25MG  QD PO
     Route: 048
     Dates: start: 20060829, end: 20060914
  2. EPOGEN [Concomitant]
  3. ATENOLOL [Concomitant]
  4. FAMOTADINE [Concomitant]
  5. PROMETHAZINE W/ CODEINE [Concomitant]
  6. LOVASTATIN [Concomitant]
  7. HYDROCHLOROTHIAZDE TAB [Concomitant]
  8. WARFARIN SODIUM [Concomitant]

REACTIONS (1)
  - PANCYTOPENIA [None]
